FAERS Safety Report 8874242 (Version 1)
Quarter: 2012Q4

REPORT INFORMATION
  Report Type: 
  Country: US (occurrence: US)
  Receive Date: 20121030
  Receipt Date: 20121030
  Transmission Date: 20130627
  Serious: Yes (Other)
  Sender: FDA-Public Use
  Company Number: US-GILEAD-2012-0055453

PATIENT
  Sex: Male

DRUGS (19)
  1. LETAIRIS [Suspect]
     Indication: PULMONARY HYPERTENSION
     Dosage: 10 UNK, UNK
     Route: 048
     Dates: start: 20120210
  2. LETAIRIS [Suspect]
     Dosage: 5 mg, UNK
     Route: 048
     Dates: start: 20120209
  3. REVATIO [Concomitant]
  4. TRACLEER                           /01587701/ [Concomitant]
  5. ALPRAZOLAM [Concomitant]
  6. CHLORHEXIDINE GLUCONATE [Concomitant]
  7. CLINDAMYCIN HCL [Concomitant]
  8. ENALAPRIL MALEATE [Concomitant]
  9. FLUTICASONE PROPIONATE [Concomitant]
  10. GLIMEPIRIDE [Concomitant]
  11. HYDROCODONE W/APAP                 /00607101/ [Concomitant]
  12. KLOR-CON [Concomitant]
  13. LANTUS [Concomitant]
  14. LEVOTHYROXINE SODIUM [Concomitant]
  15. METFORMIN HCL [Concomitant]
  16. OMEPRAZOLE [Concomitant]
  17. PROMETHAZINE - CODEINE             /01129901/ [Concomitant]
  18. PROVENTIL HFA                      /00139501/ [Concomitant]
  19. ZOLPIDEM TARTRATE [Concomitant]

REACTIONS (4)
  - Pulmonary valve disease [Unknown]
  - Waist circumference increased [Unknown]
  - Dyspnoea [Unknown]
  - Oedema peripheral [Unknown]
